FAERS Safety Report 7900890-1 (Version None)
Quarter: 2011Q4

REPORT INFORMATION
  Report Type: 
  Country: None (occurrence: None)
  Receive Date: 20111108
  Receipt Date: 20111025
  Transmission Date: 20120403
  Serious: Yes (Hospitalization, Other)
  Sender: FDA-Public Use
  Company Number: DK-MYLANLABS-2011S1014437

PATIENT
  Age: 23 Year
  Sex: Female
  Weight: 73.6 kg

DRUGS (16)
  1. EFFEXOR [Suspect]
     Indication: PRODUCT USED FOR UNKNOWN INDICATION
     Dates: start: 20060928, end: 20081201
  2. MIGEA [Suspect]
     Dates: start: 20100813
  3. IBUPROFEN [Concomitant]
     Indication: PAIN
     Dates: start: 20061201
  4. PAROXETINE HCL [Concomitant]
     Indication: PRODUCT USED FOR UNKNOWN INDICATION
     Dates: end: 20100101
  5. TRUXAL [Suspect]
     Indication: PSYCHOTIC DISORDER
     Dates: start: 20061201, end: 20110801
  6. TRAMADOL HCL [Suspect]
     Indication: PAIN
     Dates: start: 20060816, end: 20061201
  7. IMOVANE [Suspect]
     Indication: INSOMNIA
     Dates: start: 20060405, end: 20110401
  8. IBRUPROFEN [Suspect]
     Indication: HEADACHE
     Dates: start: 20041201, end: 20110301
  9. PAMOL [Concomitant]
     Indication: PAIN
     Dates: start: 20061201
  10. PAROXETINE HCL [Suspect]
     Indication: DEPRESSION
     Dates: start: 20090223
  11. EFFEXOR [Suspect]
  12. ACETAMINOPHEN [Concomitant]
     Indication: NECK PAIN
     Dates: start: 20060816
  13. NORTRIPTYLINE HCL [Suspect]
     Indication: DEPRESSION
     Dates: start: 20080925, end: 20081201
  14. MIANSERIN [Suspect]
     Indication: ANXIETY
     Dates: start: 20080925, end: 20081201
  15. MIRTAZAPINE [Suspect]
     Indication: ANXIETY
     Dates: start: 20060320, end: 20110401
  16. MIGEA [Suspect]
     Indication: MIGRAINE
     Dates: start: 20100618

REACTIONS (15)
  - CONSTIPATION [None]
  - NECK PAIN [None]
  - OEDEMA [None]
  - RECTAL HAEMORRHAGE [None]
  - TOXICITY TO VARIOUS AGENTS [None]
  - INSOMNIA [None]
  - DEPRESSION [None]
  - HAEMORRHOIDS [None]
  - FAECES HARD [None]
  - SYNCOPE [None]
  - ABDOMINAL DISTENSION [None]
  - GASTROOESOPHAGEAL REFLUX DISEASE [None]
  - DYSPEPSIA [None]
  - HEADACHE [None]
  - SUICIDAL IDEATION [None]
